FAERS Safety Report 9521850 (Version 2)
Quarter: 2013Q3

REPORT INFORMATION
  Report Type: Report from Study
  Country: US (occurrence: US)
  Receive Date: 20130913
  Receipt Date: 20130913
  Transmission Date: 20140515
  Serious: Yes (Other)
  Sender: FDA-Public Use
  Company Number: US-ROCHE-1270990

PATIENT
  Age: 23 Year
  Sex: Female
  Weight: 98.7 kg

DRUGS (10)
  1. RITUXAN [Suspect]
     Indication: PRODUCT USED FOR UNKNOWN INDICATION
     Route: 065
  2. CYTOXAN [Suspect]
     Indication: LYMPHOMA
     Dosage: EVERY 3 WEEKS
     Route: 042
     Dates: start: 20130809
  3. VINCRISTINE [Suspect]
     Indication: LYMPHOMA
     Dosage: EVERY 3 WEEKS
     Route: 042
     Dates: start: 20130809
  4. DOXORUBICIN [Suspect]
     Indication: LYMPHOMA
     Dosage: EVERY THREE WEEKS
     Route: 042
     Dates: start: 20130809
  5. ZOFRAN [Concomitant]
     Indication: NAUSEA
     Dosage: EVERY 3 WEEKS
     Route: 042
     Dates: start: 20130809
  6. BENADRYL (UNITED STATES) [Concomitant]
     Dosage: EVERY 3 WEEKS
     Route: 048
     Dates: start: 20130809
  7. APAP [Concomitant]
     Indication: PYREXIA
     Dosage: EVERY 3 WEEKS
     Route: 048
     Dates: start: 20130809
  8. APAP [Concomitant]
     Indication: CHILLS
  9. DECADRON [Concomitant]
     Dosage: EVERY 3 WEEKS
     Route: 042
     Dates: start: 20130809
  10. NEULASTA [Concomitant]
     Route: 058

REACTIONS (13)
  - Asthenia [Recovered/Resolved]
  - Fall [Unknown]
  - Nausea [Recovered/Resolved]
  - Neuropathy peripheral [Recovered/Resolved]
  - Emotional disorder [Recovered/Resolved]
  - Chills [Unknown]
  - Fatigue [Unknown]
  - Abdominal pain upper [Unknown]
  - Arthralgia [Unknown]
  - Mucosal inflammation [Unknown]
  - Decreased appetite [Unknown]
  - Diarrhoea [Unknown]
  - Pain [Recovered/Resolved]
